FAERS Safety Report 20960025 (Version 1)
Quarter: 2022Q2

REPORT INFORMATION
  Report Type: Spontaneous
  Country: US (occurrence: None)
  Receive Date: 20220615
  Receipt Date: 20220615
  Transmission Date: 20220721
  Serious: Yes (Other)
  Sender: FDA-Public Use
  Company Number: 2022A217161

PATIENT
  Sex: Female

DRUGS (3)
  1. FASLODEX [Suspect]
     Active Substance: FULVESTRANT
     Indication: Breast cancer
     Route: 030
  2. KEYTRUDA [Concomitant]
     Active Substance: PEMBROLIZUMAB
     Route: 065
  3. PIQRAY [Concomitant]
     Active Substance: ALPELISIB
     Route: 065

REACTIONS (1)
  - Acquired gene mutation [Unknown]
